FAERS Safety Report 4985160-6 (Version None)
Quarter: 2006Q2

REPORT INFORMATION
  Report Type: 
  Country: None (occurrence: None)
  Receive Date: 20060427
  Receipt Date: 20050218
  Transmission Date: 20061013
  Serious: Yes (Hospitalization)
  Sender: FDA-Public Use
  Company Number: US-MERCK-0502USA03002

PATIENT
  Age: 52 Year
  Sex: Male
  Weight: 94 kg

DRUGS (1)
  1. VIOXX [Suspect]
     Indication: ARTHRITIS
     Route: 048
     Dates: start: 20010510, end: 20040930

REACTIONS (7)
  - ACUTE MYOCARDIAL INFARCTION [None]
  - ANGINA UNSTABLE [None]
  - ARTERIAL DISORDER [None]
  - CORONARY ARTERY DISEASE [None]
  - DYSPEPSIA [None]
  - INJURY [None]
  - LIMB INJURY [None]
